FAERS Safety Report 11988127 (Version 2)
Quarter: 2016Q2

REPORT INFORMATION
  Report Type: Report from Study
  Country: JP (occurrence: JP)
  Receive Date: 20160202
  Receipt Date: 20160512
  Transmission Date: 20160815
  Serious: No
  Sender: FDA-Public Use
  Company Number: JP-EISAI MEDICAL RESEARCH-EC-2016-014043

PATIENT
  Age: 73 Year
  Sex: Male
  Weight: 65 kg

DRUGS (10)
  1. MYSER [Concomitant]
     Active Substance: DIFLUPREDNATE
  2. KERATINAMIN [Concomitant]
     Active Substance: UREA
  3. LENVIMA [Suspect]
     Active Substance: LENVATINIB
     Indication: PAPILLARY THYROID CANCER
     Route: 048
     Dates: start: 20150724, end: 20150724
  4. LENVIMA [Suspect]
     Active Substance: LENVATINIB
     Route: 048
     Dates: start: 20150725, end: 20150726
  5. LEVOTHYROXINE SODIUM HYDRATE [Concomitant]
  6. PYDOXAL [Concomitant]
     Active Substance: PYRIDOXAL
  7. HIRUDOID [Concomitant]
     Active Substance: GLYCOSAMINOGLYCANS
  8. LENVIMA [Suspect]
     Active Substance: LENVATINIB
     Route: 048
     Dates: start: 20150727, end: 20150727
  9. LENVIMA [Suspect]
     Active Substance: LENVATINIB
     Route: 048
     Dates: start: 20150728
  10. NORVASC [Concomitant]
     Active Substance: AMLODIPINE BESYLATE

REACTIONS (1)
  - Hypertension [Recovered/Resolved]

NARRATIVE: CASE EVENT DATE: 20150724
